FAERS Safety Report 4288738-0 (Version None)
Quarter: 2004Q1

REPORT INFORMATION
  Report Type: 
  Country: None (occurrence: None)
  Receive Date: 20040129
  Receipt Date: 20021220
  Transmission Date: 20041129
  Serious: Yes (Other)
  Sender: FDA-Public Use
  Company Number: NSADSS2002047717

PATIENT
  Age: 27 Year
  Sex: Female
  Weight: 52.6173 kg

DRUGS (1)
  1. ORTHO-CEPT [Suspect]
     Indication: CONTRACEPTION
     Dosage: 1 DOSE (S), ORAL
     Route: 048
     Dates: start: 20021201, end: 20021217

REACTIONS (5)
  - DIFFICULTY IN WALKING [None]
  - DYSARTHRIA [None]
  - HEADACHE [None]
  - VISION BLURRED [None]
  - VISUAL FIELD DEFECT [None]
